FAERS Safety Report 6565561-5 (Version None)
Quarter: 2010Q1

REPORT INFORMATION
  Report Type: 
  Country: None (occurrence: None)
  Receive Date: 20100201
  Receipt Date: 20100122
  Transmission Date: 20100710
  Serious: Yes (Hospitalization)
  Sender: FDA-Public Use
  Company Number: BR-ABBOTT-10P-020-0621902-00

PATIENT
  Sex: Male
  Weight: 73 kg

DRUGS (3)
  1. HUMIRA [Suspect]
     Indication: RHEUMATOID ARTHRITIS
     Route: 058
     Dates: start: 20060101
  2. GLIMEPIRIDE [Concomitant]
     Indication: DIABETES MELLITUS
     Route: 048
  3. CHLOROQUINE 125 MG + PARACETAMOL 400 MG [Concomitant]
     Indication: ARTHRITIS
     Dosage: 250 MG + 800 MG EVERY 12 HRS
     Route: 048

REACTIONS (2)
  - AORTIC OCCLUSION [None]
  - INFARCTION [None]
